FAERS Safety Report 12441552 (Version 1)
Quarter: 2016Q2

REPORT INFORMATION
  Report Type: Spontaneous
  Country: US (occurrence: None)
  Receive Date: 20160606
  Receipt Date: 20160606
  Transmission Date: 20160815
  Serious: Yes (Hospitalization)
  Sender: FDA-Public Use
  Company Number: None

PATIENT

DRUGS (1)
  1. CHLORAL HYDRATE, 100 MG/ML VITAL CARE COMPOUNDER [Suspect]
     Active Substance: CHLORAL HYDRATE
     Dosage: 1000 MG DENTAL SEDATION ORAL
     Route: 048
     Dates: start: 20160602, end: 20160602

REACTIONS (2)
  - Sedation [None]
  - Product preparation error [None]

NARRATIVE: CASE EVENT DATE: 20160602
